FAERS Safety Report 6555479-6 (Version None)
Quarter: 2010Q1

REPORT INFORMATION
  Report Type: 
  Country: None (occurrence: None)
  Receive Date: 20100128
  Receipt Date: 20100120
  Transmission Date: 20100710
  Serious: Yes (Hospitalization)
  Sender: FDA-Public Use
  Company Number: DE-ASTRAZENECA-2010SE03111

PATIENT
  Sex: Male
  Weight: 75 kg

DRUGS (1)
  1. SEROQUEL XR [Suspect]
     Indication: BIPOLAR I DISORDER
     Route: 048

REACTIONS (4)
  - CONTUSION [None]
  - FACIAL BONES FRACTURE [None]
  - FALL [None]
  - SYNCOPE [None]
